FAERS Safety Report 11857052 (Version 6)
Quarter: 2016Q2

REPORT INFORMATION
  Report Type: Report from Study
  Country: US (occurrence: US)
  Receive Date: 20151221
  Receipt Date: 20160407
  Transmission Date: 20160815
  Serious: Yes (Other)
  Sender: FDA-Public Use
  Company Number: US-AMGEN-USASL2015134836

PATIENT
  Age: 81 Year
  Sex: Female

DRUGS (1)
  1. ENBREL [Suspect]
     Active Substance: ETANERCEPT
     Indication: RHEUMATOID ARTHRITIS
     Dosage: 50 MG, QWK
     Route: 065
     Dates: start: 20150624

REACTIONS (16)
  - Gallbladder operation [Unknown]
  - Abdominal pain upper [Unknown]
  - Fall [Unknown]
  - Pain [Recovering/Resolving]
  - Neck pain [Unknown]
  - Pain in extremity [Unknown]
  - Arthralgia [Unknown]
  - Back pain [Unknown]
  - Musculoskeletal stiffness [Unknown]
  - Musculoskeletal chest pain [Recovering/Resolving]
  - Joint effusion [Unknown]
  - Malaise [Unknown]
  - Nausea [Recovering/Resolving]
  - Osteoarthritis [Unknown]
  - Urinary tract infection [Unknown]
  - Sinusitis [Unknown]

NARRATIVE: CASE EVENT DATE: 2015
